FAERS Safety Report 7565669-1 (Version None)
Quarter: 2011Q2

REPORT INFORMATION
  Report Type: 
  Country: None (occurrence: None)
  Receive Date: 20110623
  Receipt Date: 20110615
  Transmission Date: 20111010
  Serious: Yes (Death, Life-Threatening, Hospitalization)
  Sender: FDA-Public Use
  Company Number: NL-GENZYME-CLOF-1001395

PATIENT
  Sex: Male
  Weight: 95 kg

DRUGS (5)
  1. IDARUBICIN HCL [Suspect]
     Indication: ACUTE LEUKAEMIA
     Dosage: 20 MG, QOD
     Route: 042
     Dates: start: 20101113, end: 20101117
  2. CYTARABINE [Suspect]
     Indication: ACUTE LEUKAEMIA
     Dosage: 200 MG, QD
     Route: 042
     Dates: start: 20101113, end: 20101122
  3. EVOLTRA [Suspect]
     Indication: ACUTE LEUKAEMIA
     Dosage: 20 MG, QOD
     Route: 042
     Dates: start: 20101114, end: 20101122
  4. VORICONAZOLE [Concomitant]
     Indication: INFECTION PROPHYLAXIS
     Dosage: UNK
     Route: 065
     Dates: end: 20110415
  5. CIPROFLOXACIN [Concomitant]
     Indication: INFECTION PROPHYLAXIS
     Route: 065

REACTIONS (2)
  - PANCYTOPENIA [None]
  - ENTEROCOCCAL BACTERAEMIA [None]
